FAERS Safety Report 10130215 (Version 1)
Quarter: 2014Q2

REPORT INFORMATION
  Report Type: Spontaneous
  Country: US (occurrence: None)
  Receive Date: 20140425
  Receipt Date: 20140425
  Transmission Date: 20141212
  Serious: Yes (Disabling)
  Sender: FDA-Public Use
  Company Number: None

PATIENT
  Age: 2 Year
  Sex: Male
  Weight: 11.34 kg

DRUGS (1)
  1. CEFDINIR [Suspect]
     Route: 048

REACTIONS (4)
  - Rash generalised [None]
  - Erythema [None]
  - Ear swelling [None]
  - Swelling face [None]
